FAERS Safety Report 25705614 (Version 1)
Quarter: 2025Q3

REPORT INFORMATION
  Report Type: Spontaneous
  Country: US (occurrence: None)
  Receive Date: 20250819
  Receipt Date: 20250819
  Transmission Date: 20251021
  Serious: Yes (Death)
  Sender: FDA-CTU
  Company Number: None

PATIENT
  Age: 82 Year
  Sex: Male
  Weight: 77.4 kg

DRUGS (1)
  1. EXJADE [Suspect]
     Active Substance: DEFERASIROX
     Indication: Iron overload
     Dosage: 500 MG DAILY ORAL ?
     Route: 048
     Dates: start: 20240731, end: 20250731

REACTIONS (1)
  - Death [None]

NARRATIVE: CASE EVENT DATE: 20250731
